FAERS Safety Report 7505376-4 (Version None)
Quarter: 2011Q2

REPORT INFORMATION
  Report Type: 
  Country: None (occurrence: None)
  Receive Date: 20110526
  Receipt Date: 20110523
  Transmission Date: 20111010
  Serious: Yes (Other)
  Sender: FDA-Public Use
  Company Number: US-JNJFOC-20101101250

PATIENT
  Sex: Female
  Weight: 9.2 kg

DRUGS (2)
  1. CONCENTRATED TYLENOL INFANT DROPS [Suspect]
     Indication: PYREXIA
     Route: 048
  2. CONCENTRATED TYLENOL INFANT DROPS [Suspect]
     Route: 048

REACTIONS (4)
  - RESPIRATORY DISTRESS [None]
  - PRODUCT QUALITY ISSUE [None]
  - FEBRILE CONVULSION [None]
  - VOMITING [None]
